FAERS Safety Report 6579388-1 (Version None)
Quarter: 2010Q1

REPORT INFORMATION
  Report Type: 
  Country: None (occurrence: None)
  Receive Date: 20100203
  Receipt Date: 20100118
  Transmission Date: 20100710
  Serious: Yes (Death)
  Sender: FDA-Public Use
  Company Number: B0627589A

PATIENT
  Age: 29 Year
  Sex: Male

DRUGS (7)
  1. DIAZEPAM [Suspect]
     Dosage: ORAL
     Route: 048
  2. LAMICTAL [Suspect]
     Dosage: ORAL
     Route: 048
  3. BENZODIAZEPINES (FORMULATION UNKNOWN) [Suspect]
     Dosage: ORAL
     Route: 048
  4. FLUOXETINE [Suspect]
     Dosage: ORAL
     Route: 048
  5. VENLAFAXINE HCL [Suspect]
     Dosage: ORAL
     Route: 048
  6. MAOI (FORMULATION UNKNOWN) (MAOI) [Suspect]
     Dosage: ORAL
     Route: 048
  7. TRYPTOPHAN (FORMULATION UNKNOWN) (TRYPTOPHAN [Suspect]
     Dosage: ORAL
     Route: 048

REACTIONS (1)
  - DEATH [None]
